FAERS Safety Report 9578220 (Version 1)
Quarter: 2013Q4

REPORT INFORMATION
  Report Type: Spontaneous
  Country: US (occurrence: US)
  Receive Date: 20131001
  Receipt Date: 20131001
  Transmission Date: 20140711
  Serious: No
  Sender: FDA-Public Use
  Company Number: US-AMGEN-USASP2013012510

PATIENT
  Age: 63 Year
  Sex: Female
  Weight: 107.94 kg

DRUGS (10)
  1. ENBREL [Suspect]
     Indication: RHEUMATOID ARTHRITIS
     Dosage: 50 MG, QWK
     Route: 058
  2. ARAVA [Concomitant]
     Dosage: 10 MG, UNK
  3. MULTIVIT                           /07504101/ [Concomitant]
     Dosage: UNK
  4. SULFASALAZIN [Concomitant]
     Dosage: 500 MG, UNK
  5. DIOVAN [Concomitant]
     Dosage: 40 MG, UNK
  6. KLOR CON [Concomitant]
     Dosage: 8 MEQ, UNK
  7. VITAMIN D                          /00107901/ [Concomitant]
     Dosage: 400 UNIT, UNK
  8. FOLIC ACID [Concomitant]
     Dosage: 1 MG, UNK
  9. LEVOTHYROXINE [Concomitant]
     Dosage: 50 MUG, UNK
  10. SIMVASTATIN [Concomitant]
     Dosage: UNK

REACTIONS (3)
  - Injection site pain [Unknown]
  - Cellulitis [Recovered/Resolved]
  - Hepatic enzyme increased [Unknown]
